FAERS Safety Report 8615080-7 (Version None)
Quarter: 2012Q3

REPORT INFORMATION
  Report Type: 
  Country: None (occurrence: None)
  Receive Date: 20120823
  Receipt Date: 20120817
  Transmission Date: 20120928
  Serious: Yes (Other)
  Sender: FDA-Public Use
  Company Number: PHHY2011US63731

PATIENT
  Sex: Female

DRUGS (4)
  1. GILENYA [Suspect]
     Indication: RELAPSING-REMITTING MULTIPLE SCLEROSIS
     Dosage: 0.5 MG, QOD
     Route: 048
     Dates: start: 20090201, end: 20110101
  2. CYMBALTA [Concomitant]
     Dosage: 60 MG, QOD
  3. ADDERALL XR 10 [Concomitant]
     Indication: FATIGUE
     Dosage: 20 MG, QOD
  4. ATIVAN [Concomitant]
     Indication: ANXIETY
     Dosage: 0.5 MG, QHS

REACTIONS (6)
  - ASTHMA [None]
  - PAIN IN EXTREMITY [None]
  - HYPOAESTHESIA [None]
  - CONDITION AGGRAVATED [None]
  - CENTRAL NERVOUS SYSTEM LESION [None]
  - MULTIPLE SCLEROSIS RELAPSE [None]
